FAERS Safety Report 5199082-1 (Version None)
Quarter: 2007Q1

REPORT INFORMATION
  Report Type: 
  Country: None (occurrence: None)
  Receive Date: 20070104
  Receipt Date: 20061225
  Transmission Date: 20070707
  Serious: Yes (Hospitalization)
  Sender: FDA-Public Use
  Company Number: JP-PFIZER INC-2006146977

PATIENT
  Sex: Female

DRUGS (5)
  1. DALACIN S [Suspect]
     Indication: BRONCHITIS
     Dosage: DAILY DOSE:600MG
     Route: 042
     Dates: start: 20061127, end: 20061127
  2. SOLITA-T 3G [Concomitant]
     Route: 042
     Dates: start: 20061127, end: 20061127
  3. NORVASC [Concomitant]
     Route: 048
  4. OLMETEC [Concomitant]
     Route: 048
  5. NEUROTROPIN [Concomitant]
     Route: 048

REACTIONS (1)
  - DYSPNOEA [None]
